FAERS Safety Report 9449756 (Version 1)
Quarter: 2013Q3

REPORT INFORMATION
  Report Type: Spontaneous
  Country: US (occurrence: US)
  Receive Date: 20130809
  Receipt Date: 20130809
  Transmission Date: 20140515
  Serious: Yes (Hospitalization)
  Sender: FDA-Public Use
  Company Number: US-BAYER-2013-096544

PATIENT
  Age: 42 Year
  Sex: Female

DRUGS (9)
  1. OCELLA [Suspect]
  2. Z-PAK [Concomitant]
  3. MIRAPEX [Concomitant]
  4. AMBIEN [Concomitant]
  5. IBUPROFEN [Concomitant]
  6. DOXYCYCLINE [Concomitant]
  7. CARBAMAZEPINE [Concomitant]
  8. SPIRONOLACTONE [Concomitant]
  9. VICODIN [Concomitant]

REACTIONS (1)
  - Pulmonary embolism [None]
